FAERS Safety Report 6190075-4 (Version None)
Quarter: 2009Q2

REPORT INFORMATION
  Report Type: 
  Country: None (occurrence: None)
  Receive Date: 20090513
  Receipt Date: 20090513
  Transmission Date: 20091009
  Serious: Yes (Other)
  Sender: FDA-Public Use
  Company Number: None

PATIENT
  Sex: Female
  Weight: 45.3597 kg

DRUGS (1)
  1. HIBICLENS [Suspect]
     Indication: WOUND
     Dosage: 50CC, 4 TIMES, 030

REACTIONS (3)
  - COMPARTMENT SYNDROME [None]
  - JOINT RANGE OF MOTION DECREASED [None]
  - PITTING OEDEMA [None]
